FAERS Safety Report 24605938 (Version 1)
Quarter: 2024Q4

REPORT INFORMATION
  Report Type: Spontaneous
  Country: CA (occurrence: CA)
  Receive Date: 20241111
  Receipt Date: 20241111
  Transmission Date: 20250114
  Serious: Yes (Other)
  Sender: TEVA
  Company Number: CA-TEVA-VS-3261457

PATIENT
  Age: 66 Year
  Sex: Female
  Weight: 74 kg

DRUGS (2)
  1. LEFLUNOMIDE [Suspect]
     Active Substance: LEFLUNOMIDE
     Indication: Product used for unknown indication
     Dosage: DOSAGE FORM:NOT SPECIFIED
     Route: 065
  2. SULFASALAZINE [Suspect]
     Active Substance: SULFASALAZINE
     Indication: Product used for unknown indication
     Dosage: DOSAGE FORM:NOT SPECIFIED
     Route: 065

REACTIONS (1)
  - Non-Hodgkin^s lymphoma [Not Recovered/Not Resolved]
